FAERS Safety Report 9461926 (Version 1)
Quarter: 2013Q3

REPORT INFORMATION
  Report Type: Spontaneous
  Country: US (occurrence: US)
  Receive Date: 20130816
  Receipt Date: 20130816
  Transmission Date: 20140515
  Serious: Yes (Hospitalization, Other)
  Sender: FDA-Public Use
  Company Number: US-BAYER-2013-094419

PATIENT
  Age: 82 Year
  Sex: Male

DRUGS (5)
  1. XARELTO [Suspect]
     Indication: HIP ARTHROPLASTY
     Dosage: 20 MG, UNK
     Route: 048
     Dates: start: 20130622
  2. XARELTO [Suspect]
     Indication: THROMBOSIS PROPHYLAXIS
  3. XARELTO [Suspect]
     Indication: CEREBROVASCULAR ACCIDENT
  4. XARELTO [Suspect]
     Indication: CEREBROVASCULAR ACCIDENT PROPHYLAXIS
  5. ACETYLSALICYLIC ACID({=100 MG) [Suspect]
     Dosage: 81 MG, UNK
     Route: 065

REACTIONS (3)
  - Haematoma [Recovering/Resolving]
  - Procedural haemorrhage [None]
  - Haemoglobin decreased [None]
